FAERS Safety Report 7004074-3 (Version None)
Quarter: 2010Q3

REPORT INFORMATION
  Report Type: 
  Country: None (occurrence: None)
  Receive Date: 20100920
  Receipt Date: 20100201
  Transmission Date: 20110219
  Serious: No
  Sender: FDA-Public Use
  Company Number: US-WYE-H13296710

PATIENT

DRUGS (2)
  1. PROTONIX [Suspect]
     Indication: IRRITABLE BOWEL SYNDROME
     Dosage: UNKNOWN
  2. LIPITOR [Suspect]
     Indication: BLOOD CHOLESTEROL INCREASED
     Dosage: UNKNOWN

REACTIONS (2)
  - ABDOMINAL DISTENSION [None]
  - ARTHRALGIA [None]
